FAERS Safety Report 6919149-4 (Version None)
Quarter: 2010Q3

REPORT INFORMATION
  Report Type: 
  Country: None (occurrence: None)
  Receive Date: 20100811
  Receipt Date: 20100706
  Transmission Date: 20110219
  Serious: Yes (Hospitalization)
  Sender: FDA-Public Use
  Company Number: US-ASTRAZENECA-2010SE31377

PATIENT
  Age: 85 Year
  Sex: Male
  Weight: 86 kg

DRUGS (3)
  1. TOPROL-XL [Suspect]
     Indication: HYPERTENSION
     Route: 048
  2. UROXATRAL [Interacting]
     Indication: URINARY RETENTION
     Route: 048
     Dates: start: 20100609
  3. UROXATRAL [Interacting]
     Indication: PROSTATOMEGALY
     Route: 048
     Dates: start: 20100609

REACTIONS (2)
  - LOSS OF CONSCIOUSNESS [None]
  - POTENTIATING DRUG INTERACTION [None]
